FAERS Safety Report 8282606-5 (Version None)
Quarter: 2012Q2

REPORT INFORMATION
  Report Type: 
  Country: None (occurrence: None)
  Receive Date: 20120413
  Receipt Date: 20120409
  Transmission Date: 20120825
  Serious: Yes (Hospitalization, Other)
  Sender: FDA-Public Use
  Company Number: US-ABBOTT-12P-163-0923184-00

PATIENT
  Sex: Male
  Weight: 64.922 kg

DRUGS (2)
  1. KALETRA [Suspect]
     Indication: HIV INFECTION
     Dates: start: 20060406
  2. TRIAMCINOLONE [Interacting]
     Indication: COMPRESSION FRACTURE
     Route: 050
     Dates: start: 20120101, end: 20120101

REACTIONS (10)
  - DRUG INTERACTION [None]
  - RECTAL HAEMORRHAGE [None]
  - COMPRESSION FRACTURE [None]
  - CUSHING'S SYNDROME [None]
  - OEDEMA PERIPHERAL [None]
  - THORACIC VERTEBRAL FRACTURE [None]
  - BLOOD POTASSIUM DECREASED [None]
  - ANAEMIA [None]
  - NAUSEA [None]
  - VOMITING [None]
